FAERS Safety Report 9431429 (Version 1)
Quarter: 2013Q3

REPORT INFORMATION
  Report Type: Spontaneous
  Country: DK (occurrence: CN)
  Receive Date: 20130730
  Receipt Date: 20130730
  Transmission Date: 20140515
  Serious: Yes (Death)
  Sender: FDA-Public Use
  Company Number: CN-FRI-1000047366

PATIENT
  Sex: Female

DRUGS (1)
  1. DINOPROSTONE [Suspect]
     Indication: INDUCTION OF CERVIX RIPENING

REACTIONS (1)
  - Anaphylactoid syndrome of pregnancy [Fatal]
